FAERS Safety Report 22396774 (Version 3)
Quarter: 2023Q2

REPORT INFORMATION
  Report Type: Spontaneous
  Country: CA (occurrence: CA)
  Receive Date: 20230601
  Receipt Date: 20230622
  Transmission Date: 20230721
  Serious: Yes (Other)
  Sender: FDA-Public Use
  Company Number: CA-CELLTRION INC.-2023CA010904

PATIENT

DRUGS (4)
  1. YUFLYMA [Suspect]
     Active Substance: ADALIMUMAB-AATY
     Indication: Rheumatoid arthritis
     Dosage: 40 MILLIGRAM, EVERY 2 WEEKS
     Route: 058
     Dates: start: 20230215
  2. YUFLYMA [Suspect]
     Active Substance: ADALIMUMAB-AATY
     Dosage: 40 MILLIGRAM, EVERY 2 WEEKS (MOST RECENTT)
     Route: 058
     Dates: start: 20230515
  3. METHOTREXATE [Suspect]
     Active Substance: METHOTREXATE
     Indication: Product used for unknown indication
     Dosage: 6 DF, WEEKLY
  4. FOLIC ACID [Suspect]
     Active Substance: FOLIC ACID
     Indication: Product used for unknown indication
     Dosage: 1 DF, WEEKLY

REACTIONS (6)
  - Pain in extremity [Not Recovered/Not Resolved]
  - Arthralgia [Not Recovered/Not Resolved]
  - Skin discolouration [Not Recovered/Not Resolved]
  - Swelling [Not Recovered/Not Resolved]
  - Depression [Not Recovered/Not Resolved]
  - Loss of personal independence in daily activities [Not Recovered/Not Resolved]

NARRATIVE: CASE EVENT DATE: 20230409
